FAERS Safety Report 8578180-6 (Version None)
Quarter: 2012Q3

REPORT INFORMATION
  Report Type: 
  Country: None (occurrence: None)
  Receive Date: 20120808
  Receipt Date: 20120802
  Transmission Date: 20120928
  Serious: No
  Sender: FDA-Public Use
  Company Number: US-PFIZER INC-2012105398

PATIENT
  Age: 39 Year
  Sex: Female
  Weight: 90.703 kg

DRUGS (5)
  1. LYRICA [Suspect]
     Indication: CONVULSION
     Dosage: 300 MG, 2X/DAY
     Route: 048
  2. CRESTOR [Concomitant]
     Dosage: UNK
  3. TOPIRAMATE [Concomitant]
     Indication: CONVULSION
     Dosage: 50 MG, DAILY
  4. RANEXA [Concomitant]
     Indication: CHEST PAIN
     Dosage: 500 MG, 2X/DAY
  5. LYRICA [Suspect]
     Indication: FIBROMYALGIA

REACTIONS (1)
  - DRUG INEFFECTIVE [None]
